APPROVED DRUG PRODUCT: TELMISARTAN
Active Ingredient: TELMISARTAN
Strength: 80MG
Dosage Form/Route: TABLET;ORAL
Application: A205150 | Product #003 | TE Code: AB
Applicant: INVENTIA HEALTHCARE LTD
Approved: Oct 30, 2015 | RLD: No | RS: Yes | Type: RX